FAERS Safety Report 7942843-3 (Version None)
Quarter: 2011Q4

REPORT INFORMATION
  Report Type: 
  Country: None (occurrence: None)
  Receive Date: 20111128
  Receipt Date: 20111118
  Transmission Date: 20120403
  Serious: Yes (Other)
  Sender: FDA-Public Use
  Company Number: AU-UCBSA-045315

PATIENT
  Age: 55 Year
  Sex: Female

DRUGS (3)
  1. HYDROXYCHLOROQUINE SULFATE [Concomitant]
     Route: 048
     Dates: start: 20110624
  2. CIMZIA [Suspect]
     Indication: RHEUMATOID ARTHRITIS
     Route: 058
     Dates: start: 20111007, end: 20111105
  3. LEFLUNOMIDE [Concomitant]
     Route: 048
     Dates: start: 20110301

REACTIONS (6)
  - OVERDOSE [None]
  - DISORIENTATION [None]
  - SUICIDAL IDEATION [None]
  - DEPRESSION [None]
  - AMNESIA [None]
  - SLEEP DISORDER [None]
